FAERS Safety Report 5140638-X (Version None)
Quarter: 2006Q4

REPORT INFORMATION
  Report Type: 
  Country: None (occurrence: None)
  Receive Date: 20061025
  Receipt Date: 20061012
  Transmission Date: 20070319
  Serious: Yes (Hospitalization, Other)
  Sender: FDA-Public Use
  Company Number: 2006126426

PATIENT
  Age: 61 Year
  Sex: Female

DRUGS (4)
  1. LYRICA [Suspect]
     Indication: HIPPOCAMPAL SCLEROSIS
     Dosage: ORAL
     Route: 048
     Dates: start: 20030101
  2. PHENYTOIN [Concomitant]
  3. NICORANDIL [Concomitant]
  4. CLOPIDOGREL [Concomitant]

REACTIONS (7)
  - ABDOMINAL DISTENSION [None]
  - BLOOD PRESSURE INCREASED [None]
  - CARDIAC DISORDER [None]
  - CARDIAC VALVE DISEASE [None]
  - CHEST PAIN [None]
  - CONVULSION [None]
  - HEART RATE DECREASED [None]
